FAERS Safety Report 4729428-7 (Version None)
Quarter: 2005Q3

REPORT INFORMATION
  Report Type: 
  Country: None (occurrence: None)
  Receive Date: 20050728
  Receipt Date: 20050715
  Transmission Date: 20060218
  Serious: Yes (Hospitalization, Other)
  Sender: FDA-Public Use
  Company Number: 2005082112

PATIENT
  Age: 50 Year
  Sex: Male

DRUGS (1)
  1. LIPITOR [Suspect]
     Indication: BLOOD CHOLESTEROL INCREASED
     Dosage: 20 MG (20 MG, QD INTERVAL: EVERY DAY), ORAL
     Route: 048
     Dates: start: 20030201

REACTIONS (2)
  - CHOLELITHIASIS [None]
  - PANCREATITIS ACUTE [None]
